FAERS Safety Report 9593020 (Version 3)
Quarter: 2013Q4

REPORT INFORMATION
  Report Type: Report from Study
  Country: US (occurrence: US)
  Receive Date: 20131004
  Receipt Date: 20131017
  Transmission Date: 20140711
  Serious: Yes (Hospitalization)
  Sender: FDA-Public Use
  Company Number: US-JNJFOC-20130917806

PATIENT
  Age: 19 Year
  Sex: Female
  Weight: 70.7 kg

DRUGS (6)
  1. REMICADE [Suspect]
     Indication: CROHN^S DISEASE
     Route: 042
     Dates: start: 20120625
  2. REMICADE [Suspect]
     Indication: CROHN^S DISEASE
     Route: 042
     Dates: start: 20071106
  3. PEPCID [Concomitant]
     Route: 065
  4. NORETHINDRONE [Concomitant]
     Route: 065
  5. CYMBALTA [Concomitant]
     Route: 065
  6. LUPRON [Concomitant]
     Route: 065

REACTIONS (1)
  - Hyperaesthesia [Recovered/Resolved]
